FAERS Safety Report 6475283-7 (Version None)
Quarter: 2009Q4

REPORT INFORMATION
  Report Type: 
  Country: None (occurrence: None)
  Receive Date: 20091204
  Receipt Date: 20090612
  Transmission Date: 20100525
  Serious: Yes (Death, Hospitalization, Other)
  Sender: FDA-Public Use
  Company Number: US-ELI_LILLY_AND_COMPANY-US200904001649

PATIENT
  Age: 44 Year
  Sex: Female

DRUGS (2)
  1. XIGRIS [Suspect]
     Indication: SEPSIS
     Dosage: UNK, UNK
     Dates: start: 20090401, end: 20090401
  2. XIGRIS [Suspect]
     Dates: start: 20090401, end: 20090401

REACTIONS (3)
  - CLOSTRIDIAL INFECTION [None]
  - CONTINUOUS HAEMODIAFILTRATION [None]
  - SEPSIS [None]
